FAERS Safety Report 11087980 (Version 1)
Quarter: 2015Q2

REPORT INFORMATION
  Report Type: Spontaneous
  Country: US (occurrence: US)
  Receive Date: 20150504
  Receipt Date: 20150504
  Transmission Date: 20150821
  Serious: Yes (Hospitalization, Other)
  Sender: FDA-Public Use
  Company Number: US-B.I. PHARMACEUTICALS,INC./RIDGEFIELD-2015-BI-21859BP

PATIENT
  Age: 66 Year
  Sex: Female
  Weight: 60 kg

DRUGS (2)
  1. ALBUTEROL. [Concomitant]
     Active Substance: ALBUTEROL
     Indication: CHRONIC OBSTRUCTIVE PULMONARY DISEASE
     Route: 055
  2. COMBIVENT [Suspect]
     Active Substance: ALBUTEROL SULFATE\IPRATROPIUM BROMIDE
     Indication: CHRONIC OBSTRUCTIVE PULMONARY DISEASE
     Dosage: STRENGTH: 20 MCG / 100 MCG; DAILY DOSE: 80 MCG / 400 MCG
     Route: 055

REACTIONS (5)
  - Dyspnoea [Recovered/Resolved]
  - Blindness transient [Recovered/Resolved]
  - Photophobia [Recovered/Resolved]
  - Eye pain [Recovered/Resolved]
  - Fall [Recovered/Resolved]

NARRATIVE: CASE EVENT DATE: 20141116
